FAERS Safety Report 20751306 (Version 2)
Quarter: 2022Q2

REPORT INFORMATION
  Report Type: Report from Study
  Country: CN (occurrence: CN)
  Receive Date: 20220426
  Receipt Date: 20220520
  Transmission Date: 20220721
  Serious: Yes (Life-Threatening, Hospitalization)
  Sender: FDA-Public Use
  Company Number: CN-BRISTOL-MYERS SQUIBB COMPANY-2022-024316

PATIENT
  Age: 64 Year
  Sex: Male
  Weight: 72 kg

DRUGS (5)
  1. AZACITIDINE [Suspect]
     Active Substance: AZACITIDINE
     Indication: Myelodysplastic syndrome
     Dosage: 7 DAYS WITHIN THE FIRST 9 DAYS OF EACH 28-DAY CYCLE (75 MG/M2,1 IN 1 D)
     Route: 058
     Dates: start: 20210521, end: 20220215
  2. AZACITIDINE [Suspect]
     Active Substance: AZACITIDINE
     Dosage: 7 DAYS WITHIN THE FIRST 9 DAYS OF EACH 28-DAY CYCLE
     Route: 058
     Dates: start: 20220425
  3. VENETOCLAX [Suspect]
     Active Substance: VENETOCLAX
     Indication: Myelodysplastic syndrome
     Dosage: 14 -DAYS OFF
     Route: 048
     Dates: start: 20210521, end: 20220322
  4. VENETOCLAX [Suspect]
     Active Substance: VENETOCLAX
     Dosage: 14 DAYS ON, 14 DAYS OFF
     Route: 048
     Dates: start: 20220425
  5. ERYTHROMYCIN [Concomitant]
     Active Substance: ERYTHROMYCIN
     Indication: Hordeolum
     Dosage: 2.5 GRAM, AS REQUIRED
     Route: 061
     Dates: start: 20211104

REACTIONS (1)
  - Anaemia [Recovered/Resolved]

NARRATIVE: CASE EVENT DATE: 20220407
